FAERS Safety Report 13589294 (Version 1)
Quarter: 2017Q2

REPORT INFORMATION
  Report Type: Spontaneous
  Country: ES (occurrence: ES)
  Receive Date: 20170529
  Receipt Date: 20170529
  Transmission Date: 20170830
  Serious: Yes (Other)
  Sender: FDA-Public Use
  Company Number: ES-ACCORD-051775

PATIENT
  Age: 76 Month
  Sex: Male

DRUGS (3)
  1. FLUDROCORTISONE [Concomitant]
     Active Substance: FLUDROCORTISONE
     Indication: ADRENOGENITAL SYNDROME
  2. ANASTROZOLE. [Suspect]
     Active Substance: ANASTROZOLE
     Indication: ADRENOGENITAL SYNDROME
  3. HYDROCORTISONE. [Concomitant]
     Active Substance: HYDROCORTISONE
     Indication: ADRENOGENITAL SYNDROME
     Dosage: STARTED  AT AGE OF 4 YRS

REACTIONS (2)
  - Spondylolisthesis [Recovered/Resolved]
  - Off label use [Unknown]
